FAERS Safety Report 19846933 (Version 1)
Quarter: 2021Q3

REPORT INFORMATION
  Report Type: Spontaneous
  Country: CN (occurrence: CN)
  Receive Date: 20210917
  Receipt Date: 20210917
  Transmission Date: 20211014
  Serious: Yes (Other)
  Sender: FDA-Public Use
  Company Number: CN-009507513-2109CHN003399

PATIENT
  Age: 81 Year
  Sex: Female
  Weight: 45.5 kg

DRUGS (2)
  1. TIENAM [Suspect]
     Active Substance: CILASTATIN SODIUM\IMIPENEM
     Indication: ANAEMIA
     Dosage: 0.5 GRAM, Q8H
     Route: 042
     Dates: start: 20210628
  2. TIENAM [Suspect]
     Active Substance: CILASTATIN SODIUM\IMIPENEM
     Dosage: 0.5 GRAM, Q6H
     Route: 042
     Dates: start: 20210702, end: 20210709

REACTIONS (2)
  - Product use in unapproved indication [Unknown]
  - Epilepsy [Recovering/Resolving]

NARRATIVE: CASE EVENT DATE: 20210628
